FAERS Safety Report 18314465 (Version 2)
Quarter: 2020Q4

REPORT INFORMATION
  Report Type: Spontaneous
  Country: US (occurrence: US)
  Receive Date: 20200925
  Receipt Date: 20201210
  Transmission Date: 20210113
  Serious: No
  Sender: FDA-Public Use
  Company Number: US-PFIZER INC-2020367768

PATIENT
  Age: 60 Year
  Sex: Female
  Weight: 53.07 kg

DRUGS (3)
  1. IBRANCE [Suspect]
     Active Substance: PALBOCICLIB
     Indication: BREAST CANCER METASTATIC
     Dosage: 100 MG, CYCLIC (QD (ONCE A DAY) X 21D THEN 7D OFF)
     Route: 048
     Dates: start: 20190322
  2. FASLODEX [Suspect]
     Active Substance: FULVESTRANT
     Dosage: UNK, EVERY 3 WEEKS
  3. IBRANCE [Suspect]
     Active Substance: PALBOCICLIB
     Indication: BREAST CANCER FEMALE
     Dosage: 100 MG, CYCLIC (FOR 21 DAYS ON THEN OFF FOR 7 DAYS)
     Route: 048
     Dates: start: 2020

REACTIONS (6)
  - Product taste abnormal [Unknown]
  - Fatigue [Unknown]
  - Abdominal pain upper [Unknown]
  - Alopecia [Not Recovered/Not Resolved]
  - Condition aggravated [Not Recovered/Not Resolved]
  - White blood cell count decreased [Unknown]

NARRATIVE: CASE EVENT DATE: 20201207
